FAERS Safety Report 8598441-4 (Version None)
Quarter: 2012Q3

REPORT INFORMATION
  Report Type: 
  Country: None (occurrence: None)
  Receive Date: 20120816
  Receipt Date: 20120815
  Transmission Date: 20120928
  Serious: Yes (Hospitalization)
  Sender: FDA-Public Use
  Company Number: DE-ROCHE-1068143

PATIENT
  Sex: Female
  Weight: 79 kg

DRUGS (7)
  1. AVASTIN [Suspect]
     Indication: BREAST CANCER
     Route: 042
     Dates: start: 20120502
  2. GRANISETRON [Concomitant]
     Dates: start: 20120502
  3. DOXORUBICIN HCL [Suspect]
     Indication: BREAST CANCER
     Dosage: LAST DOSE PRIOR TO SAE: 9/MAY/2012
     Route: 042
     Dates: start: 20120502
  4. RANITIDINE HCL [Concomitant]
     Dates: start: 20120502
  5. CARBOPLATIN [Suspect]
     Indication: BREAST CANCER
     Dosage: LAST DOSE PRIOR TO SAE: 9 MAY 2012
     Route: 042
     Dates: start: 20120502
  6. PACLITAXEL [Suspect]
     Indication: BREAST CANCER
     Dosage: LAST DOSE PRIOR TO SAE: 9/MAY/2012
     Route: 042
     Dates: start: 20120502
  7. DEXAMETHASONE [Concomitant]
     Dates: start: 20120502

REACTIONS (2)
  - GENERAL PHYSICAL HEALTH DETERIORATION [None]
  - BRADYCARDIA [None]
